FAERS Safety Report 21849528 (Version 2)
Quarter: 2023Q2

REPORT INFORMATION
  Report Type: Report from Study
  Country: US (occurrence: US)
  Receive Date: 20230111
  Receipt Date: 20230412
  Transmission Date: 20230722
  Serious: No
  Sender: FDA-Public Use
  Company Number: US-ABBVIE-4233282

PATIENT
  Sex: Male

DRUGS (2)
  1. SKYRIZI [Suspect]
     Active Substance: RISANKIZUMAB-RZAA
     Indication: Psoriasis
     Dosage: WEEK 4
     Route: 058
  2. SKYRIZI [Suspect]
     Active Substance: RISANKIZUMAB-RZAA
     Dosage: WEEK 0?FORM STRENGTH: 150 MG
     Route: 058
     Dates: start: 202210, end: 202210

REACTIONS (4)
  - Nasopharyngitis [Unknown]
  - Drug ineffective [Unknown]
  - Psoriatic arthropathy [Unknown]
  - Psoriasis [Unknown]
